FAERS Safety Report 13720262 (Version 3)
Quarter: 2018Q1

REPORT INFORMATION
  Report Type: Report from Study
  Country: NL (occurrence: NL)
  Receive Date: 20170706
  Receipt Date: 20180225
  Transmission Date: 20180508
  Serious: Yes (Life-Threatening, Hospitalization, Disabling)
  Sender: FDA-Public Use
  Company Number: NL-ROCHE-1942144

PATIENT
  Age: 5 Year
  Sex: Male

DRUGS (9)
  1. VINCRISTINE [Suspect]
     Active Substance: VINCRISTINE
     Indication: DIFFUSE LARGE B-CELL LYMPHOMA
     Dosage: LAST DOSE PROIR TO SERIOUS ADVERSE EVENT ON10/MAY/2017
     Route: 042
     Dates: start: 20170510, end: 20170510
  2. AMBISOME [Concomitant]
     Active Substance: AMPHOTERICIN B
  3. PREDNISOLONE. [Suspect]
     Active Substance: PREDNISOLONE
     Indication: DIFFUSE LARGE B-CELL LYMPHOMA
     Dosage: LAST DOSE PROIR TO SERIOUS ADVERSE EVENT
     Route: 042
     Dates: start: 20170510, end: 20170514
  4. ENDOXAN [Suspect]
     Active Substance: CYCLOPHOSPHAMIDE
     Indication: DIFFUSE LARGE B-CELL LYMPHOMA
     Dosage: LAST DOSE PROIR TO SERIOUS ADVERSE EVENT ON10/MAY/2017
     Route: 042
     Dates: start: 20170510, end: 20170513
  5. DOXORUBICINE [Suspect]
     Active Substance: DOXORUBICIN
     Indication: DIFFUSE LARGE B-CELL LYMPHOMA
     Dosage: LAST DOSE PROIR TO SERIOUS ADVERSE EVENT ON11/MAY/2017
     Route: 042
     Dates: start: 20170511
  6. RITUXIMAB. [Suspect]
     Active Substance: RITUXIMAB
     Indication: DIFFUSE LARGE B-CELL LYMPHOMA
     Dosage: LAST DOSE PROIR TO SERIOUS ADVERSE EVENT ON10/MAY/2017
     Route: 042
     Dates: start: 20170510, end: 20170510
  7. DOXORUBICINE [Suspect]
     Active Substance: DOXORUBICIN
     Route: 042
     Dates: start: 20170510, end: 20170510
  8. METHOTREXATE. [Suspect]
     Active Substance: METHOTREXATE
     Indication: DIFFUSE LARGE B-CELL LYMPHOMA
     Dosage: LAST DOSE PROIR TO SERIOUS ADVERSE EVENT ON10/MAY/2017
     Route: 042
     Dates: start: 20170510, end: 20170510
  9. ACID FOLIC [Suspect]
     Active Substance: FOLIC ACID
     Indication: DIFFUSE LARGE B-CELL LYMPHOMA
     Dosage: LAST DOSE PROIR TO SERIOUS ADVERSE EVENT ON11/MAY/2017
     Route: 042
     Dates: start: 20170511, end: 20170513

REACTIONS (2)
  - Respiratory failure [Recovered/Resolved]
  - Pneumonia [Recovered/Resolved]

NARRATIVE: CASE EVENT DATE: 20170518
